FAERS Safety Report 23129382 (Version 2)
Quarter: 2023Q4

REPORT INFORMATION
  Report Type: Spontaneous
  Country: US (occurrence: US)
  Receive Date: 20231031
  Receipt Date: 20231110
  Transmission Date: 20240110
  Serious: Yes (Other)
  Sender: FDA-Public Use
  Company Number: US-FreseniusKabi-FK202317118

PATIENT
  Age: 66 Year
  Sex: Male
  Weight: 93.4 kg

DRUGS (1)
  1. HEPARIN SODIUM [Suspect]
     Active Substance: HEPARIN SODIUM
     Indication: Anticoagulant therapy
     Dosage: 1,000 UNITS/ML 30 ML VIALS?GAVE 11,000 UNITS
     Route: 042
     Dates: start: 20231010

REACTIONS (2)
  - Coronary artery thrombosis [Unknown]
  - Therapeutic product effect decreased [Unknown]

NARRATIVE: CASE EVENT DATE: 20231010
